FAERS Safety Report 17196924 (Version 1)
Quarter: 2019Q4

REPORT INFORMATION
  Report Type: Spontaneous
  Country: US (occurrence: US)
  Receive Date: 20191224
  Receipt Date: 20191224
  Transmission Date: 20200122
  Serious: No
  Sender: FDA-Public Use
  Company Number: US-SA-2019SA356852

PATIENT
  Age: 69 Year
  Sex: Female
  Weight: 127 kg

DRUGS (25)
  1. PRAVASTATIN SODIUM. [Suspect]
     Active Substance: PRAVASTATIN SODIUM
     Indication: HYPERTENSION
  2. SPIRONOLACTONE. [Concomitant]
     Active Substance: SPIRONOLACTONE
  3. CLINDAMYCIN. [Concomitant]
     Active Substance: CLINDAMYCIN
  4. LOTEMAX [Concomitant]
     Active Substance: LOTEPREDNOL ETABONATE
  5. OASIS TEARS [Concomitant]
     Active Substance: GLYCERIN
  6. SYNTHROID [Concomitant]
     Active Substance: LEVOTHYROXINE SODIUM
  7. PREMARIN [Concomitant]
     Active Substance: ESTROGENS, CONJUGATED
  8. PLAVIX [Suspect]
     Active Substance: CLOPIDOGREL BISULFATE
     Indication: CARDIAC DISORDER
  9. FINACEA [Concomitant]
     Active Substance: AZELAIC ACID
  10. PREMARIN [Concomitant]
     Active Substance: ESTROGENS, CONJUGATED
  11. RETAINE HPMC [Concomitant]
     Active Substance: HYPROMELLOSE 2910 (4000 MPA.S)
  12. RETAINE MGD [Concomitant]
     Active Substance: LIGHT MINERAL OIL\MINERAL OIL
  13. PRAVASTATIN SODIUM. [Suspect]
     Active Substance: PRAVASTATIN SODIUM
     Indication: ANGIOPLASTY
  14. ALTACE [Concomitant]
     Active Substance: RAMIPRIL
  15. ZETIA [Concomitant]
     Active Substance: EZETIMIBE
  16. PRAVASTATIN SODIUM. [Suspect]
     Active Substance: PRAVASTATIN SODIUM
     Indication: BLOOD CHOLESTEROL INCREASED
  17. PROLENSA [Concomitant]
     Active Substance: BROMFENAC SODIUM
  18. VITAMIN D3 [Concomitant]
     Active Substance: CHOLECALCIFEROL
  19. TOPROL XL [Concomitant]
     Active Substance: METOPROLOL SUCCINATE
  20. RESTASIS [Concomitant]
     Active Substance: CYCLOSPORINE
  21. PRAVASTATIN SODIUM. [Suspect]
     Active Substance: PRAVASTATIN SODIUM
     Indication: STENT PLACEMENT
  22. DOXYCYCLINE HYCLATE. [Concomitant]
     Active Substance: DOXYCYCLINE HYCLATE
  23. PRAVASTATIN SODIUM. [Suspect]
     Active Substance: PRAVASTATIN SODIUM
     Indication: CARDIAC DISORDER
  24. NITROLINGUAL [Concomitant]
     Active Substance: NITROGLYCERIN
  25. AZASITE [Concomitant]
     Active Substance: AZITHROMYCIN MONOHYDRATE

REACTIONS (6)
  - Extrasystoles [Unknown]
  - Asthenia [Unknown]
  - Neuropathy peripheral [Unknown]
  - Muscle fatigue [Unknown]
  - Myalgia [Unknown]
  - Disability [Unknown]
